FAERS Safety Report 5118136-9 (Version None)
Quarter: 2006Q4

REPORT INFORMATION
  Report Type: 
  Country: None (occurrence: None)
  Receive Date: 20061002
  Receipt Date: 20060922
  Transmission Date: 20070319
  Serious: Yes (Other)
  Sender: FDA-Public Use
  Company Number: PHNU2006DE03217

PATIENT
  Age: 76 Year
  Sex: Female
  Weight: 60 kg

DRUGS (9)
  1. ZOMETA [Suspect]
     Indication: METASTASES TO BONE
     Dosage: 4 MG, UNK
     Route: 042
     Dates: start: 20030929, end: 20050406
  2. LANTUS [Concomitant]
     Route: 065
  3. BLOPRESS [Concomitant]
     Route: 065
  4. METAMIZOLE [Concomitant]
     Route: 065
  5. MST [Concomitant]
     Route: 065
  6. SEVREDOL [Concomitant]
     Route: 065
  7. DURAGESIC-100 [Concomitant]
     Route: 062
  8. HERCEPTIN [Concomitant]
     Route: 065
  9. BONDRONAT [Suspect]
     Indication: METASTASES TO BONE
     Dosage: 2 MG, UNK
     Route: 042
     Dates: start: 20050725, end: 20060830

REACTIONS (3)
  - FISTULA [None]
  - INFLAMMATION [None]
  - OSTEONECROSIS [None]
